FAERS Safety Report 7442302-0 (Version None)
Quarter: 2011Q2

REPORT INFORMATION
  Report Type: 
  Country: None (occurrence: None)
  Receive Date: 20110428
  Receipt Date: 20110421
  Transmission Date: 20111010
  Serious: Yes (Hospitalization)
  Sender: FDA-Public Use
  Company Number: CH-SANOFI-AVENTIS-2011SA011514

PATIENT
  Age: 61 Year
  Sex: Male
  Weight: 74 kg

DRUGS (3)
  1. TAXOTERE [Suspect]
     Route: 041
     Dates: start: 20110110, end: 20110110
  2. PLATINOL [Suspect]
     Route: 041
     Dates: start: 20110110, end: 20110110
  3. TIMONIL [Suspect]
     Indication: EPILEPSY
     Route: 048
     Dates: start: 20110121

REACTIONS (2)
  - ELECTROLYTE IMBALANCE [None]
  - RENAL FAILURE CHRONIC [None]
